FAERS Safety Report 13989817 (Version 1)
Quarter: 2017Q3

REPORT INFORMATION
  Report Type: Spontaneous
  Country: US (occurrence: US)
  Receive Date: 20170920
  Receipt Date: 20170920
  Transmission Date: 20171128
  Serious: No
  Sender: FDA-Public Use
  Company Number: US-TEVA-727816ACC

PATIENT
  Age: 34 Year
  Sex: Female

DRUGS (11)
  1. LAMICTAL [Concomitant]
     Active Substance: LAMOTRIGINE
  2. VITAMIN B12 [Concomitant]
     Active Substance: CYANOCOBALAMIN
  3. VITAMIN D3 [Concomitant]
     Active Substance: CHOLECALCIFEROL
  4. SYMBICORT [Concomitant]
     Active Substance: BUDESONIDE\FORMOTEROL FUMARATE DIHYDRATE
  5. IPRATROPIUM [Concomitant]
     Active Substance: IPRATROPIUM
  6. TRAMADOL. [Concomitant]
     Active Substance: TRAMADOL
  7. CYCLOBENZAPRINE. [Suspect]
     Active Substance: CYCLOBENZAPRINE
     Route: 065
  8. ALBUTEROL. [Concomitant]
     Active Substance: ALBUTEROL
  9. RISPERIDONE. [Concomitant]
     Active Substance: RISPERIDONE
  10. BENTYL [Concomitant]
     Active Substance: DICYCLOMINE HYDROCHLORIDE
  11. LYRICA [Concomitant]
     Active Substance: PREGABALIN

REACTIONS (2)
  - Blister [Recovered/Resolved]
  - Drug hypersensitivity [Recovered/Resolved]

NARRATIVE: CASE EVENT DATE: 20150310
